FAERS Safety Report 8418597-3 (Version None)
Quarter: 2012Q2

REPORT INFORMATION
  Report Type: 
  Country: None (occurrence: None)
  Receive Date: 20120607
  Receipt Date: 20120601
  Transmission Date: 20120825
  Serious: Yes (Hospitalization)
  Sender: FDA-Public Use
  Company Number: FR-BRISTOL-MYERS SQUIBB COMPANY-16598526

PATIENT
  Age: 46 Year
  Sex: Female
  Weight: 109 kg

DRUGS (3)
  1. BYETTA [Suspect]
     Indication: TYPE 2 DIABETES MELLITUS
     Dosage: BYETTA 5MICRO G, SOLUTION FOR INJECTION IN PREFILLED PEN (EXENATIDE) 2/D
     Route: 058
     Dates: end: 20120323
  2. ONGLYZA [Suspect]
     Indication: TYPE 2 DIABETES MELLITUS
     Dosage: ONGLYZA 5 MG TABLET (SAXAGLIPTIN) 1/D
     Route: 048
     Dates: start: 20120315, end: 20120323
  3. METFORMIN HCL [Suspect]

REACTIONS (1)
  - PANCREATITIS ACUTE [None]
